FAERS Safety Report 7913790-8 (Version None)
Quarter: 2011Q4

REPORT INFORMATION
  Report Type: 
  Country: None (occurrence: None)
  Receive Date: 20111115
  Receipt Date: 20111109
  Transmission Date: 20120403
  Serious: Yes (Other)
  Sender: FDA-Public Use
  Company Number: US-JNJFOC-20111104534

PATIENT
  Sex: Male
  Weight: 114.31 kg

DRUGS (12)
  1. SIMPONI [Suspect]
     Indication: RHEUMATOID ARTHRITIS
     Route: 058
     Dates: start: 20070101, end: 20100101
  2. PLAVIX [Concomitant]
     Indication: CORONARY ARTERY DISEASE
     Route: 044
     Dates: start: 20020101
  3. RANITIDINE [Concomitant]
     Indication: ULCER
     Route: 048
     Dates: start: 20000101
  4. ASCORBIC ACID [Concomitant]
     Route: 048
     Dates: start: 20070101
  5. ZETIA [Concomitant]
     Indication: BLOOD PRESSURE ABNORMAL
     Route: 048
     Dates: start: 20030101
  6. ZOCOR [Concomitant]
     Indication: BLOOD CHOLESTEROL ABNORMAL
     Route: 048
     Dates: start: 20030101
  7. FOLIC ACID [Concomitant]
     Route: 048
     Dates: start: 20070101
  8. PROTONIX [Concomitant]
     Indication: DYSPEPSIA
     Route: 048
     Dates: start: 20050101
  9. FISH OIL [Concomitant]
     Route: 048
     Dates: start: 20070101
  10. VITAMINE E [Concomitant]
     Route: 048
     Dates: start: 20070101
  11. METHOTREXATE [Concomitant]
     Indication: RHEUMATOID ARTHRITIS
     Route: 048
     Dates: start: 20070101
  12. ASPIRIN [Concomitant]
     Route: 048
     Dates: start: 20020101

REACTIONS (3)
  - ROTATOR CUFF SYNDROME [None]
  - ARTHRALGIA [None]
  - ARTHRITIS [None]
